FAERS Safety Report 16739349 (Version 2)
Quarter: 2019Q3

REPORT INFORMATION
  Report Type: Spontaneous
  Country: US (occurrence: US)
  Receive Date: 20190826
  Receipt Date: 20190911
  Transmission Date: 20191005
  Serious: No
  Sender: FDA-Public Use
  Company Number: US-AMGEN-USASP2019134338

PATIENT
  Age: 42 Year
  Sex: Female
  Weight: 80 kg

DRUGS (6)
  1. VITAMIN D [VITAMIN D NOS] [Concomitant]
     Active Substance: VITAMIN D NOS
     Dosage: 8 MICROGRAM, Q3WK
     Dates: start: 20190104, end: 20190814
  2. PARSABIV [Suspect]
     Active Substance: ETELCALCETIDE HYDROCHLORIDE
     Dosage: 7.5 MILLIGRAM, 3 TIMES/WK
     Route: 065
     Dates: start: 20190408
  3. TUMS [Concomitant]
     Active Substance: CALCIUM CARBONATE
     Dosage: 500 MILLIGRAM, BETWEEN MEALS
  4. HECTOROL [Concomitant]
     Active Substance: DOXERCALCIFEROL
     Dosage: 4 MICROGRAM, Q3WK
  5. HECTOROL [Concomitant]
     Active Substance: DOXERCALCIFEROL
     Dosage: 8 MICROGRAM, Q3WK
     Dates: start: 20190104
  6. PARSABIV [Suspect]
     Active Substance: ETELCALCETIDE HYDROCHLORIDE
     Indication: PRODUCT USED FOR UNKNOWN INDICATION
     Dosage: 5 MILLIGRAM, 3 TIMES/WK
     Route: 065
     Dates: start: 20181210

REACTIONS (1)
  - Blood calcium increased [Recovered/Resolved]

NARRATIVE: CASE EVENT DATE: 20190807
